FAERS Safety Report 7561406-5 (Version None)
Quarter: 2011Q2

REPORT INFORMATION
  Report Type: 
  Country: None (occurrence: None)
  Receive Date: 20110621
  Receipt Date: 20110131
  Transmission Date: 20111010
  Serious: No
  Sender: FDA-Public Use
  Company Number: US-ASTRAZENECA-2011SE05347

PATIENT
  Age: 82 Year
  Sex: Female

DRUGS (2)
  1. PULMICORT FLEXHALER [Suspect]
     Dosage: 2 TIMES A DAY
     Route: 055
     Dates: start: 20100101
  2. PULMICORT FLEXHALER [Suspect]
     Indication: ASTHMA
     Dosage: ONCE A DAY
     Route: 055
     Dates: start: 20070601

REACTIONS (2)
  - MUSCLE STRAIN [None]
  - BRONCHITIS [None]
